FAERS Safety Report 15580702 (Version 1)
Quarter: 2018Q4

REPORT INFORMATION
  Report Type: Spontaneous
  Country: US (occurrence: US)
  Receive Date: 20181102
  Receipt Date: 20181102
  Transmission Date: 20190205
  Serious: No
  Sender: FDA-Public Use
  Company Number: None

PATIENT
  Age: 40 Year
  Sex: Female
  Weight: 121.5 kg

DRUGS (17)
  1. DICLOFENAC POTASSIUM. [Concomitant]
     Active Substance: DICLOFENAC POTASSIUM
  2. ELETRIPTAN. [Concomitant]
     Active Substance: ELETRIPTAN
  3. CANDESARTAN. [Concomitant]
     Active Substance: CANDESARTAN
  4. LYRICA [Suspect]
     Active Substance: PREGABALIN
     Indication: MIGRAINE
     Dosage: ?          QUANTITY:1 CAPSULE(S);?
     Route: 048
     Dates: start: 20180201, end: 20180207
  5. LORAZAPAM [Concomitant]
     Active Substance: LORAZEPAM
  6. BUTTERBUR [Concomitant]
  7. AIMOVIG [Concomitant]
     Active Substance: ERENUMAB-AOOE
  8. TROKENDI XR [Concomitant]
     Active Substance: TOPIRAMATE
  9. FROVATRIPTAN. [Concomitant]
     Active Substance: FROVATRIPTAN
  10. FLUOXETINE [Concomitant]
     Active Substance: FLUOXETINE HYDROCHLORIDE
  11. ONDANSETRON. [Concomitant]
     Active Substance: ONDANSETRON
  12. FEVERFEW [Concomitant]
     Active Substance: FEVERFEW
  13. COQ10 [Concomitant]
     Active Substance: UBIDECARENONE
  14. ERRIN [Concomitant]
     Active Substance: NORETHINDRONE
  15. PROCHLORPERAZINE. [Concomitant]
     Active Substance: PROCHLORPERAZINE
  16. VENLAFAXINE HCL [Concomitant]
     Active Substance: VENLAFAXINE HYDROCHLORIDE
  17. RIBOFLAVIN (VITAMIN B2) [Concomitant]

REACTIONS (4)
  - Balance disorder [None]
  - Dizziness [None]
  - Gait disturbance [None]
  - Disorientation [None]

NARRATIVE: CASE EVENT DATE: 20180201
